FAERS Safety Report 10548456 (Version 1)
Quarter: 2014Q4

REPORT INFORMATION
  Report Type: Spontaneous
  Country: US (occurrence: US)
  Receive Date: 20141028
  Receipt Date: 20141028
  Transmission Date: 20150529
  Serious: No
  Sender: FDA-Public Use
  Company Number: US-ROXANE LABORATORIES, INC.-2014-RO-01621RO

PATIENT
  Sex: Female

DRUGS (1)
  1. ALPRAZOLAM INTENSOL [ORAL SOLUTION (CONCENTRATE)] 1 MG/ML [Suspect]
     Active Substance: ALPRAZOLAM
     Indication: STRESS
     Route: 065

REACTIONS (1)
  - Somnolence [Unknown]
